FAERS Safety Report 8242950-4 (Version None)
Quarter: 2012Q1

REPORT INFORMATION
  Report Type: 
  Country: None (occurrence: None)
  Receive Date: 20120329
  Receipt Date: 20120329
  Transmission Date: 20120608
  Serious: Yes (Other)
  Sender: FDA-Public Use
  Company Number: None

PATIENT
  Age: 29 Year
  Sex: Female
  Weight: 99.79 kg

DRUGS (3)
  1. LO LOESTRIN FE [Suspect]
     Indication: MENSTRUATION IRREGULAR
     Dosage: 1 PILL
     Route: 048
     Dates: start: 20120227, end: 20120328
  2. LO LOESTRIN FE [Suspect]
     Indication: HYPOTHYROIDISM
     Dosage: 1 PILL
     Route: 048
     Dates: start: 20120227, end: 20120328
  3. LO LOESTRIN FE [Suspect]
     Indication: MENORRHAGIA
     Dosage: 1 PILL
     Route: 048
     Dates: start: 20120227, end: 20120328

REACTIONS (11)
  - MIGRAINE [None]
  - ANXIETY [None]
  - COITAL BLEEDING [None]
  - ANGER [None]
  - DEPRESSION [None]
  - NAUSEA [None]
  - MUSCLE SPASMS [None]
  - LOSS OF LIBIDO [None]
  - MOOD SWINGS [None]
  - MENORRHAGIA [None]
  - ACNE [None]
